FAERS Safety Report 9944212 (Version 1)
Quarter: 2014Q1

REPORT INFORMATION
  Report Type: Report from Study
  Country: US (occurrence: US)
  Receive Date: 20140303
  Receipt Date: 20140303
  Transmission Date: 20141002
  Serious: No
  Sender: FDA-Public Use
  Company Number: US-ABBVIE-13P-163-1055840-00

PATIENT
  Age: 16 Year
  Sex: Male

DRUGS (6)
  1. HUMIRA [Suspect]
     Indication: COLITIS ULCERATIVE
     Route: 058
     Dates: start: 20130130, end: 20130130
  2. ENTOCORT [Concomitant]
     Indication: PRODUCT USED FOR UNKNOWN INDICATION
     Dosage: 9 MG DAILY
     Route: 048
  3. MULTIVITAMIN [Concomitant]
     Indication: PRODUCT USED FOR UNKNOWN INDICATION
     Dosage: ONE DAILY
     Route: 048
  4. CALCIUM [Concomitant]
     Indication: PRODUCT USED FOR UNKNOWN INDICATION
     Dosage: ONE DAILY
  5. TYLENOL [Concomitant]
     Indication: PYREXIA
     Dosage: EVERY FOUR HOURS
  6. TYLENOL [Concomitant]

REACTIONS (1)
  - Pyrexia [Not Recovered/Not Resolved]
